FAERS Safety Report 13506672 (Version 1)
Quarter: 2017Q2

REPORT INFORMATION
  Report Type: Spontaneous
  Country: US (occurrence: US)
  Receive Date: 20170502
  Receipt Date: 20170502
  Transmission Date: 20170830
  Serious: No
  Sender: FDA-Public Use
  Company Number: US-ROCHE-1312487

PATIENT
  Age: 39 Year
  Sex: Female

DRUGS (3)
  1. CARBOPLATIN. [Concomitant]
     Active Substance: CARBOPLATIN
     Dosage: 9 ROUNDS
     Route: 065
  2. AVASTIN [Suspect]
     Active Substance: BEVACIZUMAB
     Indication: PRODUCT USED FOR UNKNOWN INDICATION
     Dosage: 9 ROUNDS
     Route: 065
  3. TAXOTERE [Concomitant]
     Active Substance: DOCETAXEL
     Dosage: 9 ROUNDS
     Route: 065

REACTIONS (3)
  - Hypertension [Recovered/Resolved]
  - Impaired healing [Recovered/Resolved]
  - Pelvic abscess [Recovered/Resolved]
